FAERS Safety Report 8774095 (Version 1)
Quarter: 2012Q4

REPORT INFORMATION
  Report Type: 
  Country: DE (occurrence: DE)
  Receive Date: 20120907
  Receipt Date: 20120907
  Transmission Date: 20130627
  Serious: Yes (Hospitalization)
  Sender: FDA-Public Use
  Company Number: DE-JNJFOC-20120901465

PATIENT
  Age: 65 Year
  Sex: Male
  Weight: 93 kg

DRUGS (1)
  1. XARELTO [Suspect]
     Indication: POST THROMBOTIC SYNDROME
     Route: 048
     Dates: start: 20120320, end: 20120326

REACTIONS (1)
  - Helicobacter gastritis [Recovering/Resolving]
